FAERS Safety Report 9233344 (Version 1)
Quarter: 2013Q1

REPORT INFORMATION
  Report Type: Spontaneous
  Country: US (occurrence: None)
  Receive Date: 20121031
  Receipt Date: 20121031
  Transmission Date: 20140127
  Serious: No
  Sender: FDA-Public Use
  Company Number: PHEH2012US014377

PATIENT
  Age: 36 Year
  Sex: Female

DRUGS (2)
  1. GILENYA (FTY) CAPSULE, 0.5MG [Suspect]
     Indication: MULTIPLE SCLEROSIS
     Dates: start: 20120714
  2. CYMBALTA (DULOXETINE HYDROCHLORIDE) [Concomitant]

REACTIONS (8)
  - Feeling abnormal [None]
  - Sleep disorder [None]
  - Fatigue [None]
  - Mood swings [None]
  - Hot flush [None]
  - Diarrhoea [None]
  - Nasopharyngitis [None]
  - Night sweats [None]
